FAERS Safety Report 24201304 (Version 1)
Quarter: 2024Q3

REPORT INFORMATION
  Report Type: Spontaneous
  Country: US (occurrence: US)
  Receive Date: 20240812
  Receipt Date: 20240812
  Transmission Date: 20241016
  Serious: No
  Sender: BRISTOL MYERS SQUIBB
  Company Number: US-BRISTOL-MYERS SQUIBB COMPANY-2024-126862

PATIENT
  Age: 57 Year
  Sex: Male
  Weight: 108.4 kg

DRUGS (1)
  1. POMALYST [Suspect]
     Active Substance: POMALIDOMIDE
     Indication: Plasma cell myeloma
     Route: 048
     Dates: start: 20240723

REACTIONS (3)
  - Gait disturbance [Recovering/Resolving]
  - Dizziness [Unknown]
  - Vertigo [Unknown]
